FAERS Safety Report 12508582 (Version 1)
Quarter: 2016Q2

REPORT INFORMATION
  Report Type: Spontaneous
  Country: US (occurrence: US)
  Receive Date: 20160629
  Receipt Date: 20160629
  Transmission Date: 20160815
  Serious: Yes (Other)
  Sender: FDA-Public Use
  Company Number: US-PFIZER INC-2016317663

PATIENT
  Age: 65 Year
  Sex: Female

DRUGS (1)
  1. ADVIL [Suspect]
     Active Substance: IBUPROFEN
     Indication: SWELLING FACE
     Dosage: 5 DF, WITHIN AN HOUR

REACTIONS (3)
  - Loss of consciousness [Unknown]
  - Drug ineffective for unapproved indication [Unknown]
  - Extra dose administered [Unknown]
